FAERS Safety Report 7625158-2 (Version None)
Quarter: 2011Q3

REPORT INFORMATION
  Report Type: 
  Country: None (occurrence: None)
  Receive Date: 20110713
  Receipt Date: 20110630
  Transmission Date: 20111222
  Serious: Yes (Hospitalization)
  Sender: FDA-Public Use
  Company Number: 1000022008

PATIENT
  Age: 80 Year
  Sex: Female

DRUGS (21)
  1. LYRICA [Suspect]
     Dosage: 50 MG (25 MG, 2 IN 1 D), 100 MG (50 MG, 2 IN 1 D)
     Dates: start: 20110516
  2. LYRICA [Suspect]
     Dosage: 50 MG (25 MG, 2 IN 1 D), 100 MG (50 MG, 2 IN 1 D)
     Dates: start: 20110525
  3. LOVENOX (ENOXAPARIN SODIUM) (ENOXAPARIN SODIUM) [Concomitant]
  4. KARDEGIC (ACETYLSALICYLIC LYSINE) (ACETYLSALICYLIC LYSINE) [Concomitant]
  5. OXYCONTIN (OXYCODONE HYDROCHLORIDE) (OXYCODONE HYDROCHLORIDE) [Concomitant]
  6. FORLAX (MACROGOL) (MACROGOL) [Concomitant]
  7. PERFALGAN (PARACETAMOL) (PARACETAMOL) [Concomitant]
  8. TARDYFERON (FERROUS SULFATE) (FERROUS SULFATE) [Concomitant]
  9. RENITEC (ENALAPRIL) (ENALAPRIL) [Concomitant]
  10. NEXIUM [Concomitant]
  11. SPECIAFOLDINE (FOLIC ACID) (FOLIC ACID) [Concomitant]
  12. PRIMPERAN (METOCLOPRAMIDE) (METOCLOPRAMIDE) [Concomitant]
  13. MEMANTINE HYDROCHLORIDE [Suspect]
     Dosage: 5 MG (5 MG, 1 IN 1 D), ORAL
     Route: 048
     Dates: start: 20110514, end: 20110520
  14. MEMANTINE HYDROCHLORIDE [Suspect]
     Dosage: 10 MG (5 MG, 2 IN 1 D), ORAL
     Route: 048
     Dates: start: 20110524
  15. FLAGYL [Suspect]
     Indication: CLOSTRIDIAL INFECTION
     Dosage: (3 IN 1 D), INTRAVENOUS
     Route: 042
     Dates: start: 20110516
  16. LOXEN (NICARDIPINE HYDROCHLORIDE) (NICARDIPINE HYDROCHLORIDE) [Concomitant]
  17. MORPHINE [Concomitant]
  18. TOPALGIC (TRAMADOL HYDROCHLORIDE) (TRAMADOL HYDROCHLORIDE) [Concomitant]
  19. ACUPAN (NEFOPAM HYDROCHLORIDE) (NEFOPAM HYDROCHLORIDE) [Concomitant]
  20. CACIT D3 (CALCIUM CARBONATE, CHOLECALCIFEROL (CALCIUM CARBONATE, CHOLE [Concomitant]
  21. DIFFU K (POTASSIUM CHLORIDE) (POTASSIUM CHLORIDE) [Concomitant]

REACTIONS (9)
  - NORMOCHROMIC NORMOCYTIC ANAEMIA [None]
  - LIVER DISORDER [None]
  - IMPAIRED HEALING [None]
  - INFECTION [None]
  - GAMMA-GLUTAMYLTRANSFERASE INCREASED [None]
  - ASPARTATE AMINOTRANSFERASE INCREASED [None]
  - GLYCOSYLATED HAEMOGLOBIN INCREASED [None]
  - CHOLESTASIS [None]
  - BLOOD ALKALINE PHOSPHATASE INCREASED [None]
